FAERS Safety Report 20332187 (Version 1)
Quarter: 2022Q1

REPORT INFORMATION
  Report Type: Spontaneous
  Country: IT (occurrence: IT)
  Receive Date: 20220113
  Receipt Date: 20220113
  Transmission Date: 20220423
  Serious: Yes (Other)
  Sender: FDA-Public Use
  Company Number: IT-009507513-2201ITA001979

PATIENT
  Age: 84 Year
  Sex: Female

DRUGS (2)
  1. JANUVIA [Suspect]
     Active Substance: SITAGLIPTIN PHOSPHATE
     Indication: Diabetes mellitus
     Route: 048
  2. METFORMIN [Concomitant]
     Active Substance: METFORMIN HYDROCHLORIDE
     Indication: Diabetes mellitus
     Dosage: 1/2 TABLET IN THE EVENING
     Route: 048

REACTIONS (5)
  - Diabetes mellitus [Unknown]
  - Urinary tract infection [Unknown]
  - Pyrexia [Unknown]
  - Feeling cold [Unknown]
  - Decreased appetite [Unknown]
